FAERS Safety Report 5221628-5 (Version None)
Quarter: 2007Q1

REPORT INFORMATION
  Report Type: 
  Country: None (occurrence: None)
  Receive Date: 20070126
  Receipt Date: 20070126
  Transmission Date: 20070707
  Serious: Yes (Life-Threatening)
  Sender: FDA-Public Use
  Company Number: None

PATIENT
  Age: 52 Year
  Sex: Male
  Weight: 76.2 kg

DRUGS (2)
  1. AMOXICILLIN [Suspect]
     Indication: HELICOBACTER INFECTION
     Dosage: 1000 MG TWICE DAILY PO
     Route: 048
  2. CLARITHROMYCIN [Suspect]
     Dosage: TWICE DAILY PO
     Route: 048

REACTIONS (2)
  - DYSPNOEA [None]
  - RASH [None]
